FAERS Safety Report 14253476 (Version 1)
Quarter: 2017Q4

REPORT INFORMATION
  Report Type: Spontaneous
  Country: IT (occurrence: IT)
  Receive Date: 20171206
  Receipt Date: 20171206
  Transmission Date: 20180321
  Serious: Yes (Other)
  Sender: FDA-Public Use
  Company Number: IT-ACCORD-061639

PATIENT
  Age: 64 Year
  Sex: Male

DRUGS (7)
  1. VINCRISTINE [Concomitant]
     Active Substance: VINCRISTINE
     Indication: WALDENSTROM^S MACROGLOBULINAEMIA
  2. CYTARABINE/CYTARABINE HYDROCHLORIDE/CYTARABINE OCFOSFATE [Concomitant]
     Indication: WALDENSTROM^S MACROGLOBULINAEMIA
  3. DOXORUBICIN [Concomitant]
     Active Substance: DOXORUBICIN
     Indication: WALDENSTROM^S MACROGLOBULINAEMIA
  4. CYCLOPHOSPHAMIDE/CYCLOPHOSPHAMIDE MONOHYDRATE [Concomitant]
     Indication: WALDENSTROM^S MACROGLOBULINAEMIA
     Dosage: HYPER FRACTIONATED
  5. DEXAMETHASONE. [Concomitant]
     Active Substance: DEXAMETHASONE
     Indication: WALDENSTROM^S MACROGLOBULINAEMIA
  6. METHOTREXATE. [Suspect]
     Active Substance: METHOTREXATE
     Indication: WALDENSTROM^S MACROGLOBULINAEMIA
     Dosage: LATER 15 MG 3 WEEKLY WAS GIVEN INTRATHECALLY
  7. RITUXIMAB. [Concomitant]
     Active Substance: RITUXIMAB
     Indication: WALDENSTROM^S MACROGLOBULINAEMIA

REACTIONS (2)
  - Acute kidney injury [Unknown]
  - Condition aggravated [Unknown]
